FAERS Safety Report 23288190 (Version 3)
Quarter: 2025Q2

REPORT INFORMATION
  Report Type: Spontaneous
  Country: US (occurrence: US)
  Receive Date: 20231212
  Receipt Date: 20250527
  Transmission Date: 20250716
  Serious: Yes (Other)
  Sender: CSL BEHRING
  Company Number: US-BEH-2023166263

PATIENT
  Age: 61 Year
  Sex: Female

DRUGS (3)
  1. HAEGARDA [Suspect]
     Active Substance: HUMAN C1-ESTERASE INHIBITOR
     Indication: Hereditary angioedema
     Route: 058
     Dates: start: 201907
  2. HAEGARDA [Suspect]
     Active Substance: HUMAN C1-ESTERASE INHIBITOR
     Indication: Prophylaxis
  3. FIRAZYR [Concomitant]
     Active Substance: ICATIBANT ACETATE
     Route: 065

REACTIONS (4)
  - Hereditary angioedema [Unknown]
  - Hereditary angioedema [Unknown]
  - Hereditary angioedema [Recovered/Resolved]
  - Product dose omission issue [Unknown]

NARRATIVE: CASE EVENT DATE: 20231115
